FAERS Safety Report 8737910 (Version 2)
Quarter: 2012Q4

REPORT INFORMATION
  Report Type: 
  Country: US (occurrence: US)
  Receive Date: 20120823
  Receipt Date: 20120921
  Transmission Date: 20130627
  Serious: Yes (Other)
  Sender: FDA-Public Use
  Company Number: US-009507513-1208USA003969

PATIENT
  Age: 32 Year
  Sex: Male
  Weight: 54.88 kg

DRUGS (5)
  1. ISENTRESS [Suspect]
     Indication: HIV INFECTION
     Dosage: 400 mg, bid
     Route: 048
     Dates: start: 201204, end: 20120828
  2. TRUVADA [Suspect]
     Indication: HIV INFECTION
  3. METOPROLOL [Concomitant]
     Dosage: 50 mg, qd
     Route: 048
     Dates: start: 201204
  4. MEGACE [Concomitant]
     Dosage: UNK
     Route: 048
     Dates: start: 201204
  5. ATIVAN [Concomitant]
     Dosage: 2-3 mg, qd
     Route: 048
     Dates: start: 201204

REACTIONS (4)
  - Gastrointestinal disorder [Recovered/Resolved]
  - Medication residue [Recovered/Resolved]
  - Genotype drug resistance test positive [Recovered/Resolved]
  - Malabsorption [Recovered/Resolved]
